FAERS Safety Report 23135205 (Version 1)
Quarter: 2023Q4

REPORT INFORMATION
  Report Type: Spontaneous
  Country: CZ (occurrence: CZ)
  Receive Date: 20231101
  Receipt Date: 20231101
  Transmission Date: 20240110
  Serious: Yes (Other)
  Sender: FDA-Public Use
  Company Number: CZ-SUN PHARMACEUTICAL INDUSTRIES LTD-2023RR-415851

PATIENT
  Age: 69 Year
  Sex: Female

DRUGS (2)
  1. GEMCITABINE [Suspect]
     Active Substance: GEMCITABINE
     Indication: Squamous cell carcinoma
     Dosage: 6 CYCLES
     Route: 065
     Dates: start: 201605, end: 201610
  2. CISPLATIN [Suspect]
     Active Substance: CISPLATIN
     Indication: Squamous cell carcinoma
     Dosage: 6 CYCLES
     Route: 065
     Dates: start: 201605, end: 201610

REACTIONS (3)
  - Polyneuropathy [Unknown]
  - Disease recurrence [Unknown]
  - Disease progression [Unknown]
